FAERS Safety Report 4471895-0 (Version None)
Quarter: 2004Q4

REPORT INFORMATION
  Report Type: 
  Country: None (occurrence: None)
  Receive Date: 20041006
  Receipt Date: 20040920
  Transmission Date: 20050328
  Serious: Yes (Death, Hospitalization)
  Sender: FDA-Public Use
  Company Number: 2004-BP-08410RO

PATIENT
  Age: 54 Year
  Sex: Female

DRUGS (17)
  1. DEXAMETHASONE [Suspect]
     Indication: MULTIPLE MYELOMA
     Dosage: 40 MG/DAY, PO
     Route: 048
     Dates: start: 20011012, end: 20011015
  2. DEXAMETHASONE [Suspect]
     Indication: MULTIPLE MYELOMA
     Dosage: 40 MG/DAY, PO
     Route: 048
     Dates: start: 20011019, end: 20011022
  3. GENASENSE [Suspect]
     Indication: MULTIPLE MYELOMA
     Dosage: 7 MG/KG/DAY, IV
     Route: 042
     Dates: start: 20011009, end: 20011016
  4. GENASENSE [Suspect]
     Indication: MULTIPLE MYELOMA
     Dosage: 7 MG/KG/DAY, IV
     Route: 042
     Dates: start: 20011023, end: 20011029
  5. VIOXX [Suspect]
     Indication: TIBIA FRACTURE
     Dosage: 25 MG QD (25 MG), PO
     Route: 048
     Dates: start: 20010601, end: 20011024
  6. MULTIVITAMIN [Concomitant]
  7. LISINOPRIL W/HYDROCHLOROTHIAZIDE (PRINZIDE) [Concomitant]
  8. VERAPAMIL [Concomitant]
  9. LEVOTHYROXINE SODIUM [Concomitant]
  10. POTASSIUM CHLORIDE [Concomitant]
  11. NIZATIDINE [Concomitant]
  12. EPOETIN ALFA(EPOETIN ALFA) [Concomitant]
  13. CALCIUM CARBONATE(CALCIUM CARBONATE) [Concomitant]
  14. PAMIDRONATE DISODIUM [Concomitant]
  15. HEPARIN [Concomitant]
  16. BACTRIM [Concomitant]
  17. DOLASETRON(DOLASETRON) [Concomitant]

REACTIONS (17)
  - ACTIVATED PARTIAL THROMBOPLASTIN TIME PROLONGED [None]
  - DEHYDRATION [None]
  - DISEASE PROGRESSION [None]
  - DYSPNOEA [None]
  - FLUID INTAKE REDUCED [None]
  - GENERAL PHYSICAL HEALTH DETERIORATION [None]
  - HAEMODIALYSIS [None]
  - HAEMOPTYSIS [None]
  - OLIGURIA [None]
  - PAIN [None]
  - PATHOLOGICAL FRACTURE [None]
  - PROTHROMBIN TIME PROLONGED [None]
  - RENAL FAILURE ACUTE [None]
  - RESPIRATORY ARREST [None]
  - TENDERNESS [None]
  - THIRST [None]
  - TIBIA FRACTURE [None]
